FAERS Safety Report 7076443-7 (Version None)
Quarter: 2010Q4

REPORT INFORMATION
  Report Type: 
  Country: None (occurrence: None)
  Receive Date: 20101101
  Receipt Date: 20101020
  Transmission Date: 20110411
  Serious: No
  Sender: FDA-Public Use
  Company Number: US-TYCO HEALTHCARE/MALLINCKRODT-T201002166

PATIENT
  Sex: Male
  Weight: 83.9 kg

DRUGS (6)
  1. EXALGO [Suspect]
     Indication: BACK PAIN
     Dosage: 12 MG, QD
     Route: 048
     Dates: start: 20100801, end: 20101017
  2. EXALGO [Suspect]
     Dosage: 36 MG, QD
     Route: 048
     Dates: start: 20101018, end: 20101018
  3. EXALGO [Suspect]
     Dosage: 12 MG, QD
     Route: 048
     Dates: start: 20101020
  4. TOPAMAX [Concomitant]
     Indication: NERVE INJURY
     Dosage: 50 MG AT NIGHT
     Route: 048
  5. NEXIUM [Concomitant]
     Indication: GASTROOESOPHAGEAL REFLUX DISEASE
  6. AMBIEN [Concomitant]
     Indication: SLEEP DISORDER

REACTIONS (1)
  - ACCIDENTAL OVERDOSE [None]
